FAERS Safety Report 14635823 (Version 1)
Quarter: 2018Q1

REPORT INFORMATION
  Report Type: Spontaneous
  Country: SK (occurrence: SK)
  Receive Date: 20180314
  Receipt Date: 20180314
  Transmission Date: 20180509
  Serious: Yes (Hospitalization)
  Sender: FDA-Public Use
  Company Number: SK-JNJFOC-20180315496

PATIENT
  Age: 33 Year
  Sex: Male

DRUGS (2)
  1. AFLAMIL [Concomitant]
     Indication: ANKYLOSING SPONDYLITIS
     Route: 048
  2. SIMPONI [Suspect]
     Active Substance: GOLIMUMAB
     Indication: ANKYLOSING SPONDYLITIS
     Route: 058

REACTIONS (2)
  - Angiopathy [Not Recovered/Not Resolved]
  - Antiphospholipid syndrome [Not Recovered/Not Resolved]

NARRATIVE: CASE EVENT DATE: 20171115
